FAERS Safety Report 7726221-8 (Version None)
Quarter: 2011Q3

REPORT INFORMATION
  Report Type: 
  Country: None (occurrence: None)
  Receive Date: 20110902
  Receipt Date: 20090929
  Transmission Date: 20111222
  Serious: No
  Sender: FDA-Public Use
  Company Number: US-BAYER-200935067NA

PATIENT
  Age: 40 Year
  Sex: Female

DRUGS (2)
  1. MIRENA [Suspect]
     Dosage: 20 ?G/D, CONT
     Route: 015
     Dates: start: 20090826, end: 20090922
  2. MIRENA [Suspect]
     Indication: MENORRHAGIA
     Dosage: 20 ?G/D, CONT
     Route: 015
     Dates: start: 20090826, end: 20090826

REACTIONS (13)
  - ACNE [None]
  - DEVICE DEPLOYMENT ISSUE [None]
  - PELVIC PAIN [None]
  - BACK PAIN [None]
  - MOOD SWINGS [None]
  - ABDOMINAL PAIN [None]
  - FATIGUE [None]
  - DEVICE DISLOCATION [None]
  - ABDOMINAL PAIN LOWER [None]
  - INFECTION [None]
  - GENITAL HAEMORRHAGE [None]
  - CRYING [None]
  - UTERINE ENLARGEMENT [None]
